FAERS Safety Report 8601126-9 (Version None)
Quarter: 2012Q2

REPORT INFORMATION
  Report Type: 
  Country: None (occurrence: None)
  Receive Date: 20120423
  Receipt Date: 20100212
  Transmission Date: 20120825
  Serious: Yes (Other)
  Sender: FDA-Public Use
  Company Number: PHHY2009US54427

PATIENT
  Sex: Female

DRUGS (1)
  1. FEMARA [Suspect]

REACTIONS (5)
  - HOT FLUSH [None]
  - JAW DISORDER [None]
  - FLUID RETENTION [None]
  - WRIST FRACTURE [None]
  - SWELLING [None]
